FAERS Safety Report 6822297-0 (Version None)
Quarter: 2010Q3

REPORT INFORMATION
  Report Type: 
  Country: None (occurrence: None)
  Receive Date: 20100707
  Receipt Date: 20100707
  Transmission Date: 20110219
  Serious: Yes (Other)
  Sender: FDA-Public Use
  Company Number: None

PATIENT
  Age: 47 Year
  Sex: Female
  Weight: 107.5025 kg

DRUGS (3)
  1. CYMBALTA [Suspect]
     Indication: ANXIETY
     Dosage: 60 MG 1 A DAY PO
     Route: 048
     Dates: start: 20090101, end: 20100628
  2. CYMBALTA [Suspect]
     Indication: DEPRESSION
     Dosage: 60 MG 1 A DAY PO
     Route: 048
     Dates: start: 20090101, end: 20100628
  3. CYMBALTA [Suspect]
     Dosage: 30 MG. 1 A DAY PO
     Route: 048
     Dates: start: 20100629

REACTIONS (2)
  - DRUG INEFFECTIVE [None]
  - WITHDRAWAL SYNDROME [None]
